FAERS Safety Report 4629374-3 (Version None)
Quarter: 2005Q2

REPORT INFORMATION
  Report Type: 
  Country: None (occurrence: None)
  Receive Date: 20050405
  Receipt Date: 20050323
  Transmission Date: 20051028
  Serious: Yes (Hospitalization)
  Sender: FDA-Public Use
  Company Number: HQWYE343224MAR05

PATIENT
  Age: 40 Year
  Sex: Male

DRUGS (3)
  1. RAPAMUNE [Suspect]
     Dosage: 1 MG 1X PER 1 DAY
     Route: 048
     Dates: start: 20040101, end: 20040101
  2. CYCLOSPORINE [Concomitant]
  3. CORTICOSTEROID NOS (CORTICOSTEROID NOS) [Concomitant]

REACTIONS (3)
  - LYMPHOCELE [None]
  - OEDEMA PERIPHERAL [None]
  - RENAL DISORDER [None]
